FAERS Safety Report 18246106 (Version 3)
Quarter: 2020Q3

REPORT INFORMATION
  Report Type: Spontaneous
  Country: CH (occurrence: CH)
  Receive Date: 20200909
  Receipt Date: 20200918
  Transmission Date: 20201103
  Serious: Yes (Other)
  Sender: FDA-Public Use
  Company Number: CH-STRIDES ARCOLAB LIMITED-2020SP010590

PATIENT
  Age: 71 Year
  Sex: Female

DRUGS (8)
  1. DASATINIB. [Suspect]
     Active Substance: DASATINIB
     Indication: ACUTE MYELOID LEUKAEMIA
     Dosage: 140 MILLIGRAM, EVERY 6 HRS
     Route: 065
  2. CYTARABINE. [Suspect]
     Active Substance: CYTARABINE
     Indication: ACUTE MYELOID LEUKAEMIA
     Dosage: 200 MILLIGRAM/SQ. METER, CYCLE FROM DAY 1?7
     Route: 065
  3. CYTARABINE. [Suspect]
     Active Substance: CYTARABINE
     Dosage: UNK UNK, CYCLICAL (TRIPLE INTRATHECAL CHEMOTHERAPY)
     Route: 037
  4. DASATINIB. [Suspect]
     Active Substance: DASATINIB
     Dosage: 140 MILLIGRAM, QD, FROM DAY 3
     Route: 065
  5. DAUNORUBICIN [Suspect]
     Active Substance: DAUNORUBICIN
     Indication: ACUTE MYELOID LEUKAEMIA
     Dosage: 60 MILLIGRAM/SQ. METER, CYCLE ON DAYS 1, 2 AND 3
     Route: 065
  6. METHOTREXATE. [Suspect]
     Active Substance: METHOTREXATE
     Indication: ACUTE MYELOID LEUKAEMIA
     Dosage: UNK, CYCLE, TRIPLE INTRATHECAL CHEMOTHERAPY
     Route: 037
  7. IMATINIB. [Suspect]
     Active Substance: IMATINIB MESYLATE
     Indication: ACUTE MYELOID LEUKAEMIA
     Dosage: UNK, CYCLICAL
     Route: 065
  8. HYDROCORTISONE. [Suspect]
     Active Substance: HYDROCORTISONE
     Indication: ACUTE MYELOID LEUKAEMIA
     Dosage: UNK, CYCLE, TRIPLE INTRATHECAL CHEMOTHERAPY
     Route: 037

REACTIONS (7)
  - Lung opacity [Recovered/Resolved]
  - Condition aggravated [Recovered/Resolved]
  - Off label use [Unknown]
  - Neutropenia [Recovered/Resolved]
  - Dyspnoea [Recovered/Resolved]
  - Lung disorder [Recovered/Resolved]
  - Pneumonia [Recovered/Resolved]
